FAERS Safety Report 8925287 (Version 1)
Quarter: 2012Q4

REPORT INFORMATION
  Report Type: 
  Country: AR (occurrence: AR)
  Receive Date: 20121126
  Receipt Date: 20121126
  Transmission Date: 20130627
  Serious: Yes (Other)
  Sender: FDA-Public Use
  Company Number: AR-ACTELION-A-CH2012-75030

PATIENT
  Age: 44 Year
  Sex: Female

DRUGS (1)
  1. ZAVESCA [Suspect]
     Indication: GAUCHER^S DISEASE
     Dosage: 300 mg, qd
     Route: 048
     Dates: start: 201112, end: 201211

REACTIONS (6)
  - Demyelinating polyneuropathy [Unknown]
  - Muscle spasms [Unknown]
  - Nerve conduction studies abnormal [Unknown]
  - Neuropathy peripheral [Unknown]
  - Peripheral motor neuropathy [None]
  - Axonal neuropathy [None]
